FAERS Safety Report 6620312-0 (Version None)
Quarter: 2010Q1

REPORT INFORMATION
  Report Type: 
  Country: None (occurrence: None)
  Receive Date: 20100304
  Receipt Date: 20100218
  Transmission Date: 20100710
  Serious: Yes (Congenital Anomaly)
  Sender: FDA-Public Use
  Company Number: KV201000066

PATIENT
  Sex: Male
  Weight: 3.2 kg

DRUGS (1)
  1. DILTIAZEM HYDROCHLORIDE [Suspect]
     Indication: DRUG EXPOSURE DURING PREGNANCY

REACTIONS (4)
  - ADACTYLY [None]
  - CONGENITAL MUSCULOSKELETAL ANOMALY [None]
  - JAUNDICE NEONATAL [None]
  - MATERNAL DRUGS AFFECTING FOETUS [None]
